FAERS Safety Report 4342132-2 (Version None)
Quarter: 2004Q2

REPORT INFORMATION
  Report Type: 
  Country: None (occurrence: None)
  Receive Date: 20040409
  Receipt Date: 20031003
  Transmission Date: 20050107
  Serious: Yes (Hospitalization)
  Sender: FDA-Public Use
  Company Number: 03P-163-0235818-00

PATIENT
  Sex: Male

DRUGS (1)
  1. DEPAKOTE [Suspect]

REACTIONS (1)
  - OVERDOSE [None]
